FAERS Safety Report 4558069-X (Version None)
Quarter: 2005Q1

REPORT INFORMATION
  Report Type: 
  Country: None (occurrence: None)
  Receive Date: 20050121
  Receipt Date: 20040825
  Transmission Date: 20050727
  Serious: Yes (Other)
  Sender: FDA-Public Use
  Company Number: US-BRISTOL-MYERS SQUIBB COMPANY-12682696

PATIENT
  Age: 27 Year
  Sex: Female

DRUGS (1)
  1. SERZONE [Suspect]
     Indication: MENTAL DISORDER
     Route: 048
     Dates: start: 19990101

REACTIONS (3)
  - COMPLEX PARTIAL SEIZURES [None]
  - MEDICATION ERROR [None]
  - PSYCHOTIC DISORDER [None]
